FAERS Safety Report 7573783-X (Version None)
Quarter: 2011Q2

REPORT INFORMATION
  Report Type: 
  Country: None (occurrence: None)
  Receive Date: 20110627
  Receipt Date: 20110616
  Transmission Date: 20111010
  Serious: Yes (Hospitalization)
  Sender: FDA-Public Use
  Company Number: US-CELGENEUS-163-21880-11062244

PATIENT
  Sex: Female
  Weight: 136.2 kg

DRUGS (19)
  1. ZEGERID [Concomitant]
     Route: 065
  2. REVLIMID [Suspect]
     Indication: MULTIPLE MYELOMA
     Dosage: 25 MILLIGRAM
     Route: 048
     Dates: start: 20110525
  3. ALPRAZOLAM [Concomitant]
     Route: 065
  4. HYDROCODONE [Concomitant]
     Route: 065
  5. LANTUS [Concomitant]
     Route: 065
  6. LOVENOX [Concomitant]
     Route: 065
  7. VELCADE [Concomitant]
     Route: 065
  8. HUMALOG [Concomitant]
     Route: 065
  9. LORAZEPAM [Concomitant]
     Route: 065
  10. METFORMIN HCL [Concomitant]
     Route: 065
  11. CARISOPRODOL [Concomitant]
     Route: 065
  12. DEXAMETHASONE [Concomitant]
     Route: 065
  13. DOXYCYCLINE [Concomitant]
     Route: 065
  14. GABAPENTIN [Concomitant]
     Route: 065
  15. BENAZEPRIL HYDROCHLORIDE [Concomitant]
     Route: 065
  16. ZOFRAN [Concomitant]
     Route: 065
  17. ACYCLOVIR [Concomitant]
     Route: 065
  18. CYMBALTA [Concomitant]
     Route: 065
  19. LEVOTHYROXINE SODIUM [Concomitant]
     Route: 065

REACTIONS (3)
  - HEAT EXHAUSTION [None]
  - DEHYDRATION [None]
  - DRUG DOSE OMISSION [None]
